FAERS Safety Report 25644245 (Version 1)
Quarter: 2025Q3

REPORT INFORMATION
  Report Type: Spontaneous
  Country: US (occurrence: US)
  Receive Date: 20250805
  Receipt Date: 20250805
  Transmission Date: 20251021
  Serious: No
  Sender: MYLAN
  Company Number: US-MYLANLABS-2025M1064818

PATIENT
  Age: 76 Year
  Sex: Female

DRUGS (19)
  1. AMLODIPINE [Suspect]
     Active Substance: AMLODIPINE BESYLATE
     Indication: Product used for unknown indication
  2. DUPIXENT [Suspect]
     Active Substance: DUPILUMAB
     Indication: Chronic obstructive pulmonary disease
  3. POTASSIUM [Concomitant]
     Active Substance: POTASSIUM
  4. SPIRIVA [Concomitant]
     Active Substance: TIOTROPIUM BROMIDE MONOHYDRATE
  5. IPRATROPIUM [Concomitant]
     Active Substance: IPRATROPIUM
  6. ZITHROMAX [Concomitant]
     Active Substance: AZITHROMYCIN DIHYDRATE
  7. HYZAAR [Concomitant]
     Active Substance: HYDROCHLOROTHIAZIDE\LOSARTAN POTASSIUM
  8. EFFEXOR [Concomitant]
     Active Substance: VENLAFAXINE HYDROCHLORIDE
  9. SINGULAIR [Concomitant]
     Active Substance: MONTELUKAST SODIUM
  10. ROFLUMILAST [Concomitant]
     Active Substance: ROFLUMILAST
  11. MINERALS\VITAMINS [Concomitant]
     Active Substance: MINERALS\VITAMINS
  12. ALPHAGAN P [Concomitant]
     Active Substance: BRIMONIDINE TARTRATE
  13. PREGABALIN [Concomitant]
     Active Substance: PREGABALIN
  14. FLUTICASONE [Concomitant]
     Active Substance: FLUTICASONE
  15. PREDNISONE [Concomitant]
     Active Substance: PREDNISONE
  16. EPIPEN [Concomitant]
     Active Substance: EPINEPHRINE
  17. PROVENTIL [Concomitant]
     Active Substance: ALBUTEROL
  18. VITAMIN C [Concomitant]
     Active Substance: ASCORBIC ACID
  19. PRILOSEC [Concomitant]
     Active Substance: OMEPRAZOLE MAGNESIUM

REACTIONS (2)
  - Joint swelling [Unknown]
  - Peripheral swelling [Unknown]

NARRATIVE: CASE EVENT DATE: 20250624
